FAERS Safety Report 7675061-7 (Version None)
Quarter: 2011Q3

REPORT INFORMATION
  Report Type: 
  Country: None (occurrence: None)
  Receive Date: 20110810
  Receipt Date: 20110727
  Transmission Date: 20111222
  Serious: Yes (Hospitalization, Other)
  Sender: FDA-Public Use
  Company Number: US-ELI_LILLY_AND_COMPANY-US201104007832

PATIENT
  Sex: Female
  Weight: 68 kg

DRUGS (13)
  1. FORTEO [Suspect]
     Dosage: 20 UG, QD
     Route: 058
  2. VITAMIN B COMPLEX CAP [Concomitant]
     Dosage: UNK, QD
  3. CALCIUM W/VITAMIN D NOS [Concomitant]
     Dosage: 600/400
  4. MIRALAX [Concomitant]
     Dosage: 17 G, PRN
  5. LOVAZA [Concomitant]
     Dosage: 1000 NG, QD
  6. VITAMIN D [Concomitant]
     Dosage: UNK
  7. PREVACID [Concomitant]
  8. FORTEO [Suspect]
     Indication: OSTEOPOROSIS
     Dosage: 20 UG, QD
     Route: 058
     Dates: start: 20110202
  9. CENTRUM [Concomitant]
     Dosage: UNK, QD
  10. PREMARIN [Concomitant]
  11. SIMVASTATIN [Concomitant]
  12. OMEPRAZOLE [Concomitant]
     Dosage: 20 MG, QD
  13. CITALOPRAM HYDROBROMIDE [Concomitant]

REACTIONS (15)
  - HUMERUS FRACTURE [None]
  - DIZZINESS [None]
  - HAEMATOCRIT DECREASED [None]
  - PAIN [None]
  - INJECTION SITE HAEMATOMA [None]
  - FALL [None]
  - SENSORY DISTURBANCE [None]
  - HAEMOGLOBIN DECREASED [None]
  - PALPITATIONS [None]
  - ASTHENIA [None]
  - DRUG DOSE OMISSION [None]
  - BACK PAIN [None]
  - HEART RATE INCREASED [None]
  - PELVIC DISCOMFORT [None]
  - MUSCULOSKELETAL DISCOMFORT [None]
